FAERS Safety Report 5010278-1 (Version None)
Quarter: 2006Q2

REPORT INFORMATION
  Report Type: 
  Country: None (occurrence: None)
  Receive Date: 20060404
  Receipt Date: 20051202
  Transmission Date: 20061013
  Serious: No
  Sender: FDA-Public Use
  Company Number: US200512000583

PATIENT
  Age: 74 Year
  Sex: Female

DRUGS (5)
  1. CYMBALTA [Suspect]
     Indication: BACK PAIN
     Dosage: 30 MG, ORAL
     Route: 048
     Dates: start: 20051101
  2. AGGRENOX (ACETYSALICYLIC ACID, DIPYRIDAMOLE) [Concomitant]
  3. ELAVIL [Concomitant]
  4. PLAVIX [Concomitant]
  5. MOBIC [Concomitant]

REACTIONS (2)
  - ABDOMINAL DISCOMFORT [None]
  - NAUSEA [None]
